FAERS Safety Report 8122293-X (Version None)
Quarter: 2012Q1

REPORT INFORMATION
  Report Type: 
  Country: None (occurrence: None)
  Receive Date: 20120208
  Receipt Date: 20120124
  Transmission Date: 20120608
  Serious: Yes (Death, Other)
  Sender: FDA-Public Use
  Company Number: NL-BAXTER-2011BH039847

PATIENT
  Sex: Male

DRUGS (4)
  1. PHYSIOSOL IN PLASTIC CONTAINER [Suspect]
     Indication: RENAL FAILURE CHRONIC
     Route: 033
     Dates: end: 20111215
  2. EXTRANEAL [Suspect]
     Indication: TYPE 2 DIABETES MELLITUS
     Route: 033
     Dates: end: 20111215
  3. EXTRANEAL [Suspect]
     Indication: RENAL FAILURE CHRONIC
     Route: 033
     Dates: end: 20111215
  4. PHYSIOSOL IN PLASTIC CONTAINER [Suspect]
     Indication: TYPE 2 DIABETES MELLITUS
     Route: 033
     Dates: end: 20111215

REACTIONS (2)
  - PULSELESS ELECTRICAL ACTIVITY [None]
  - CARDIAC FAILURE CHRONIC [None]
